FAERS Safety Report 24535917 (Version 2)
Quarter: 2024Q4

REPORT INFORMATION
  Report Type: Spontaneous
  Country: IR (occurrence: US)
  Receive Date: 20241022
  Receipt Date: 20241101
  Transmission Date: 20250115
  Serious: Yes (Hospitalization)
  Sender: MERCK
  Company Number: IR-009507513-2410USA006995

PATIENT
  Age: 38 Year
  Sex: Male

DRUGS (1)
  1. TEMODAR [Suspect]
     Active Substance: TEMOZOLOMIDE
     Indication: Glioma
     Dosage: 140 MILLIGRAM, QD
     Route: 048
     Dates: start: 20200826

REACTIONS (2)
  - Accidental overdose [Unknown]
  - Product use issue [Unknown]

NARRATIVE: CASE EVENT DATE: 20200826
